FAERS Safety Report 9796262 (Version 1)
Quarter: 2014Q1

REPORT INFORMATION
  Report Type: Spontaneous
  Country: GB (occurrence: GB)
  Receive Date: 20140103
  Receipt Date: 20140103
  Transmission Date: 20141002
  Serious: Yes (Other)
  Sender: FDA-Public Use
  Company Number: GB-WATSON-2013-23773

PATIENT
  Age: 26 Year
  Sex: Male

DRUGS (5)
  1. CLARITHROMYCIN (UNKNOWN) [Suspect]
     Indication: PRODUCT USED FOR UNKNOWN INDICATION
     Dosage: UNK
     Route: 065
     Dates: start: 20131209
  2. ERYTHROMYCIN [Concomitant]
     Indication: PRODUCT USED FOR UNKNOWN INDICATION
     Dosage: UNK
     Route: 065
     Dates: start: 20130808, end: 20130912
  3. ERYTHROMYCIN [Concomitant]
     Dosage: UNK
     Route: 065
     Dates: start: 20131002, end: 20131106
  4. ERYTHROMYCIN [Concomitant]
     Dosage: UNK
     Route: 065
     Dates: start: 20131209
  5. DOXYCYCLINE [Concomitant]
     Indication: PRODUCT USED FOR UNKNOWN INDICATION
     Dosage: UNK
     Route: 065
     Dates: start: 20131211

REACTIONS (2)
  - Rash papular [Recovering/Resolving]
  - Rash [Unknown]
